FAERS Safety Report 4477782-6 (Version None)
Quarter: 2004Q4

REPORT INFORMATION
  Report Type: 
  Country: None (occurrence: None)
  Receive Date: 20041014
  Receipt Date: 20040929
  Transmission Date: 20050328
  Serious: Yes (Hospitalization)
  Sender: FDA-Public Use
  Company Number: 2004234390US

PATIENT
  Age: 67 Year
  Sex: Female
  Weight: 56 kg

DRUGS (3)
  1. CAMPTOSAR [Suspect]
     Indication: SMALL CELL LUNG CANCER LIMITED STAGE
     Dosage: 99 MG,D1 D8, CYCLIC , IV
     Route: 042
     Dates: end: 20040910
  2. CISPLATIN [Suspect]
     Indication: SMALL CELL LUNG CANCER LIMITED STAGE
     Dosage: 103 MG, D1 CYCLIC, IV
     Route: 042
     Dates: start: 20040901
  3. CLINICAL TRIAL PROCEDURE  (CLINICAL TRIAL PROCEDURE) [Suspect]
     Indication: SMALL CELL LUNG CANCER LIMITED STAGE
     Dosage: RADIOTHERAPY , BID, CYCLE 1

REACTIONS (3)
  - DEHYDRATION [None]
  - NEUTROPENIA [None]
  - ORTHOSTATIC HYPOTENSION [None]
